FAERS Safety Report 19009026 (Version 1)
Quarter: 2021Q1

REPORT INFORMATION
  Report Type: Spontaneous
  Country: AU (occurrence: AU)
  Receive Date: 20210316
  Receipt Date: 20210316
  Transmission Date: 20210420
  Serious: Yes (Life-Threatening, Hospitalization, Other)
  Sender: FDA-Public Use
  Company Number: AU-ACCORD-219181

PATIENT
  Age: 67 Year
  Sex: Male

DRUGS (3)
  1. CYTARABINE/CYTARABINE HYDROCHLORIDE/CYTARABINE OCFOSFATE [Suspect]
     Active Substance: CYTARABINE
     Indication: CHLOROMA
     Dosage: INDUCTION CHEMOTHERAPY OF INTRATHECAL 7 + 3
     Route: 037
  2. DEXAMETHASONE. [Suspect]
     Active Substance: DEXAMETHASONE
     Indication: CHLOROMA
     Dosage: INDUCTION CHEMOTHERAPY OF INTRATHECAL 7 + 3
     Route: 037
  3. METHOTREXATE. [Suspect]
     Active Substance: METHOTREXATE
     Indication: CHLOROMA
     Dosage: INDUCTION CHEMOTHERAPY OF INTRATHECAL 7 + 3
     Route: 037

REACTIONS (6)
  - Staphylococcal bacteraemia [Recovering/Resolving]
  - Off label use [Unknown]
  - Delirium [Recovering/Resolving]
  - Escherichia bacteraemia [Recovering/Resolving]
  - Drug reaction with eosinophilia and systemic symptoms [Recovering/Resolving]
  - Neutropenic colitis [Recovering/Resolving]
